FAERS Safety Report 25766485 (Version 1)
Quarter: 2025Q3

REPORT INFORMATION
  Report Type: Spontaneous
  Country: US (occurrence: US)
  Receive Date: 20250905
  Receipt Date: 20250905
  Transmission Date: 20251020
  Serious: No
  Sender: INCYTE
  Company Number: US-INCYTE CORPORATION-2025IN009345

PATIENT
  Age: 78 Year
  Weight: 79.637 kg

DRUGS (28)
  1. JAKAFI [Suspect]
     Active Substance: RUXOLITINIB
     Indication: Hyperparathyroidism secondary
     Dosage: 5 MILLIGRAM, QD
     Route: 065
  2. BIOTIN [Concomitant]
     Active Substance: BIOTIN
     Indication: Product used for unknown indication
     Route: 065
  3. BIOTIN [Concomitant]
     Active Substance: BIOTIN
     Route: 065
  4. CHLORAL HYDRATE [Concomitant]
     Active Substance: CHLORAL HYDRATE
     Indication: Product used for unknown indication
     Route: 065
  5. COPPER GLUCONATE [Concomitant]
     Active Substance: COPPER GLUCONATE
     Indication: Product used for unknown indication
     Route: 065
  6. FIORICET [Concomitant]
     Active Substance: ACETAMINOPHEN\BUTALBITAL\CAFFEINE
     Indication: Product used for unknown indication
     Route: 065
  7. FISH OIL [Concomitant]
     Active Substance: FISH OIL
     Indication: Product used for unknown indication
     Route: 065
  8. FOLATE SODIUM [Concomitant]
     Active Substance: FOLATE SODIUM
     Indication: Product used for unknown indication
     Route: 065
  9. ZINGIBER OFFICINALE (GINGER) ROOT [Concomitant]
     Active Substance: GINGER
     Indication: Product used for unknown indication
     Route: 065
  10. GLUCOSAMINE [Concomitant]
     Active Substance: GLUCOSAMINE
     Indication: Product used for unknown indication
     Route: 065
  11. GRAPE [Concomitant]
     Active Substance: CONCORD GRAPE
     Indication: Product used for unknown indication
     Route: 065
  12. GREEN TEA [CAMELLIA SINENSIS EXTRACT] [Concomitant]
     Indication: Product used for unknown indication
     Route: 065
  13. LUTIN [Concomitant]
     Indication: Product used for unknown indication
     Route: 065
  14. MAGNESIUM ALUMINO SILICATE [Concomitant]
     Indication: Product used for unknown indication
     Route: 065
  15. MANGANESE AMINO ACID CHELATE [Concomitant]
     Indication: Product used for unknown indication
     Route: 065
  16. URTICA DIOICA LEAF [Concomitant]
     Active Substance: URTICA DIOICA LEAF
     Indication: Product used for unknown indication
     Route: 065
  17. NEURIVAS [Concomitant]
     Indication: Product used for unknown indication
     Route: 065
  18. PROCRIT [Concomitant]
     Active Substance: ERYTHROPOIETIN
     Indication: Product used for unknown indication
     Route: 065
  19. PROSTATE 1 [Concomitant]
     Indication: Product used for unknown indication
     Route: 065
  20. TART CHERRY [Concomitant]
     Indication: Product used for unknown indication
     Route: 065
  21. VANADYL SULFATE [Concomitant]
     Active Substance: VANADYL SULFATE
     Indication: Product used for unknown indication
     Route: 065
  22. VITAMIN A [Concomitant]
     Active Substance: VITAMIN A
     Indication: Product used for unknown indication
     Route: 065
  23. CYANOCOBALAMIN [Concomitant]
     Active Substance: CYANOCOBALAMIN
     Indication: Product used for unknown indication
     Route: 065
  24. ZINC [Concomitant]
     Active Substance: ZINC
     Indication: Product used for unknown indication
     Route: 065
  25. ALFUZOSIN [Concomitant]
     Active Substance: ALFUZOSIN
     Indication: Product used for unknown indication
     Route: 065
  26. FEBUXOSTAT [Concomitant]
     Active Substance: FEBUXOSTAT
     Indication: Product used for unknown indication
     Route: 065
  27. FINASTERIDE [Concomitant]
     Active Substance: FINASTERIDE
     Indication: Product used for unknown indication
     Route: 065
  28. SUMATRIPTAN [Concomitant]
     Active Substance: SUMATRIPTAN
     Indication: Product used for unknown indication
     Route: 065

REACTIONS (3)
  - Musculoskeletal disorder [Unknown]
  - Dizziness [Unknown]
  - Off label use [Unknown]
